FAERS Safety Report 9005418 (Version 1)
Quarter: 2013Q1

REPORT INFORMATION
  Report Type: Spontaneous
  Country: IT (occurrence: IT)
  Receive Date: 20130108
  Receipt Date: 20130108
  Transmission Date: 20140127
  Serious: Yes (Other)
  Sender: FDA-Public Use
  Company Number: IT-JNJFOC-20130102225

PATIENT
  Age: 4 Year
  Sex: Male
  Weight: 16 kg

DRUGS (1)
  1. IBUPROFEN (UNSPECIFIED) [Suspect]
     Indication: PYREXIA
     Route: 048
     Dates: start: 20121213, end: 20121213

REACTIONS (1)
  - Eyelid oedema [Recovering/Resolving]
